FAERS Safety Report 23358063 (Version 1)
Quarter: 2024Q1

REPORT INFORMATION
  Report Type: Spontaneous
  Country: BR (occurrence: BR)
  Receive Date: 20240102
  Receipt Date: 20240102
  Transmission Date: 20240410
  Serious: Yes (Other)
  Sender: FDA-Public Use
  Company Number: BR-BAYER-2023A185498

PATIENT
  Sex: Male

DRUGS (1)
  1. VITRAKVI [Suspect]
     Active Substance: LAROTRECTINIB
     Dosage: 100 MG HARD CAPSULE CARTRIDGE FLASK PLASTIC OPAQUE X 60

REACTIONS (4)
  - Pain [None]
  - Discomfort [None]
  - Insomnia [None]
  - Adverse event [None]
